FAERS Safety Report 7096909-3 (Version None)
Quarter: 2010Q4

REPORT INFORMATION
  Report Type: 
  Country: None (occurrence: None)
  Receive Date: 20101111
  Receipt Date: 20100303
  Transmission Date: 20110411
  Serious: Yes (Other)
  Sender: FDA-Public Use
  Company Number: US-KINGPHARMUSA00001-K201000153

PATIENT
  Age: 83 Year
  Sex: Male

DRUGS (1)
  1. FLECTOR [Suspect]
     Dosage: UNK
     Route: 061

REACTIONS (1)
  - INTRAOCULAR PRESSURE INCREASED [None]
